FAERS Safety Report 11844641 (Version 1)
Quarter: 2015Q4

REPORT INFORMATION
  Report Type: Spontaneous
  Country: CO (occurrence: CO)
  Receive Date: 20151217
  Receipt Date: 20151217
  Transmission Date: 20160305
  Serious: Yes (Hospitalization, Other)
  Sender: FDA-Public Use
  Company Number: CO-JNJFOC-20151213387

PATIENT
  Age: 23 Year
  Sex: Male
  Weight: 50 kg

DRUGS (1)
  1. RISPERDAL CONSTA [Suspect]
     Active Substance: RISPERIDONE
     Indication: BIPOLAR DISORDER
     Route: 030
     Dates: start: 20150415

REACTIONS (4)
  - Aggression [Not Recovered/Not Resolved]
  - Upper gastrointestinal haemorrhage [Unknown]
  - Suicide attempt [Recovered/Resolved]
  - Personality change [Not Recovered/Not Resolved]

NARRATIVE: CASE EVENT DATE: 20151117
